FAERS Safety Report 8196783-8 (Version None)
Quarter: 2012Q1

REPORT INFORMATION
  Report Type: 
  Country: None (occurrence: None)
  Receive Date: 20120309
  Receipt Date: 20120228
  Transmission Date: 20120608
  Serious: Yes (Hospitalization)
  Sender: FDA-Public Use
  Company Number: FR-PFIZER INC-2012053164

PATIENT
  Age: 60 Year
  Sex: Female

DRUGS (8)
  1. FERROUS SULFATE TAB [Concomitant]
     Dosage: UNK
     Dates: start: 20111201
  2. VFEND [Suspect]
     Indication: ASPERGILLOSIS
     Dosage: 200 MG, 2X/DAY
     Dates: start: 20111128, end: 20120118
  3. ATARAX [Suspect]
     Dosage: UNK
     Dates: start: 20100913, end: 20120118
  4. CITALOPRAM [Concomitant]
     Dosage: UNK
     Dates: start: 20110901
  5. VITAMIN D [Concomitant]
     Dosage: 1 DF, MONTHLY
     Dates: end: 20120104
  6. MOTILIUM [Suspect]
     Dosage: UNK
     Route: 048
     Dates: start: 20111228, end: 20120118
  7. ACETAMINOPHEN [Concomitant]
     Dosage: UNK
     Dates: start: 20110501
  8. MUCOMYST [Concomitant]
     Dosage: UNK
     Dates: start: 20111201

REACTIONS (6)
  - ELECTROCARDIOGRAM QT PROLONGED [None]
  - COLD SWEAT [None]
  - MALAISE [None]
  - PALLOR [None]
  - VENTRICULAR EXTRASYSTOLES [None]
  - TORSADE DE POINTES [None]
